FAERS Safety Report 16862548 (Version 1)
Quarter: 2019Q3

REPORT INFORMATION
  Report Type: Spontaneous
  Country: US (occurrence: US)
  Receive Date: 20190927
  Receipt Date: 20190927
  Transmission Date: 20191005
  Serious: No
  Sender: FDA-Public Use
  Company Number: US-MYLANLABS-2019M1087502

PATIENT
  Age: 61 Year
  Sex: Female
  Weight: 64 kg

DRUGS (2)
  1. PROGESTERONE. [Concomitant]
     Active Substance: PROGESTERONE
     Dosage: 1 DOSAGE FORM, QD
  2. ESTRADIOL TRANSDERMAL SYSTEM [Suspect]
     Active Substance: ESTRADIOL
     Indication: MENOPAUSAL SYMPTOMS
     Dosage: TWICE A WEEK
     Route: 062
     Dates: start: 20190912

REACTIONS (2)
  - Product adhesion issue [Not Recovered/Not Resolved]
  - Hot flush [Not Recovered/Not Resolved]

NARRATIVE: CASE EVENT DATE: 201909
